FAERS Safety Report 8549949-9 (Version None)
Quarter: 2012Q3

REPORT INFORMATION
  Report Type: 
  Country: None (occurrence: None)
  Receive Date: 20120718
  Receipt Date: 20120703
  Transmission Date: 20120928
  Serious: Yes (Death, Hospitalization)
  Sender: FDA-Public Use
  Company Number: TPA2010A05897

PATIENT
  Age: 64 Year
  Sex: Male
  Weight: 84.369 kg

DRUGS (3)
  1. ULORIC [Suspect]
     Indication: GOUTY TOPHUS
     Dosage: 40 MG, 1 IN 1 D, PER ORAL
     Route: 048
     Dates: start: 20091103, end: 20100609
  2. ATENOLOL [Concomitant]
  3. FOSINOPRIL SODIUM [Concomitant]

REACTIONS (3)
  - RASH PRURITIC [None]
  - NAUSEA [None]
  - HEPATIC FAILURE [None]
